FAERS Safety Report 5978639-1 (Version None)
Quarter: 2008Q4

REPORT INFORMATION
  Report Type: 
  Country: None (occurrence: None)
  Receive Date: 20081204
  Receipt Date: 20081119
  Transmission Date: 20090506
  Serious: Yes (Death, Hospitalization)
  Sender: FDA-Public Use
  Company Number: DE-ELI_LILLY_AND_COMPANY-DE200811005279

PATIENT
  Age: 50 Year
  Sex: Female

DRUGS (13)
  1. GEMZAR [Suspect]
     Indication: OVARIAN CANCER
     Dosage: 1000 MG/M2, INFUSED 9 TIMES, ON DAY I, 15, 22, 29, 42
     Route: 065
  2. DEXAMETHASONE [Concomitant]
     Indication: OVARIAN CANCER
     Dosage: 8 MG, UNKNOWN
     Route: 042
  3. GRANISETRON [Concomitant]
     Indication: OVARIAN CANCER
     Dosage: 1 MG, OTHER
     Route: 042
  4. CARBOPLATIN [Concomitant]
     Indication: OVARIAN CANCER
     Dosage: 530 MG, 8 CYCLES AT 3-WK INTERVALS
     Route: 065
  5. PACLITAXEL [Concomitant]
     Indication: OVARIAN CANCER
     Dosage: 175 MG/M2, 8 CYCLES AT 3-WK INTERVALS
     Route: 065
  6. CLEMASTINE FUMARATE [Concomitant]
     Dosage: 2 MG, UNKNOWN
     Route: 065
  7. RANITIDINE [Concomitant]
     Dosage: 50 MG, UNKNOWN
     Route: 065
  8. ONDANSETRON [Concomitant]
     Dosage: 4-8 MG, UNKNOWN
     Route: 065
  9. TREOSULFAN [Concomitant]
     Indication: OVARIAN CANCER
     Dosage: 750 MG, 2 CYCLES AT 28-DAY INTERVAL
     Route: 048
  10. DOXORUBICIN HCL [Concomitant]
     Dosage: 85 MG, 5 CYCLES AT MONTHLY INTERVALS
     Route: 065
  11. TOPOTECAN [Concomitant]
     Indication: OVARIAN CANCER
     Dosage: 2.5 MG, 5 CONSECUTIVE DAYS, 4 CYCLES WITH MONTHLY RERUNS
     Route: 065
  12. ETOPOSIDE [Concomitant]
     Indication: OVARIAN CANCER
     Dosage: 200 MG, 3 CONSECUTIVE DAYS, 3 CYCLES WITH MONTHLY RERUNS
     Route: 065
  13. METOCLOPRAMIDE [Concomitant]
     Dosage: 20 MG, UNKNOWN
     Route: 065

REACTIONS (5)
  - ASCITES [None]
  - CIRCULATORY COLLAPSE [None]
  - COLITIS ISCHAEMIC [None]
  - EXTREMITY NECROSIS [None]
  - PERITONITIS [None]
